FAERS Safety Report 20305946 (Version 1)
Quarter: 2022Q1

REPORT INFORMATION
  Report Type: Spontaneous
  Country: US (occurrence: US)
  Receive Date: 20220106
  Receipt Date: 20220106
  Transmission Date: 20220423
  Serious: No
  Sender: FDA-Public Use
  Company Number: US-AMNEAL PHARMACEUTICALS-2021-AMRX-02351

PATIENT
  Age: 50 Year
  Sex: Female
  Weight: 60.4 kg

DRUGS (7)
  1. ACTIVELLA [Suspect]
     Active Substance: ESTRADIOL\NORETHINDRONE ACETATE
     Indication: Uterine leiomyoma
     Dosage: 1 DOSAGE FORM, QD
     Route: 048
     Dates: start: 20200122
  2. ELAGOLIX [Suspect]
     Active Substance: ELAGOLIX
     Indication: Uterine leiomyoma
     Dosage: 300 MILLIGRAM, 1 /DAY
     Route: 048
     Dates: start: 20200122
  3. GLUCOSAMINE [Concomitant]
     Active Substance: GLUCOSAMINE
     Indication: Supplementation therapy
     Dosage: 500 MILLIGRAM, 2X/DAY
     Route: 048
  4. AMINO ACIDS, SOURCE UNSPECIFIED [Concomitant]
     Active Substance: AMINO ACIDS, SOURCE UNSPECIFIED
     Indication: Supplementation therapy
     Dosage: 1000 MILLIGRAM, 1 /DAY
     Route: 048
  5. VITAMINS NOS [Concomitant]
     Active Substance: VITAMINS
     Indication: Supplementation therapy
     Dosage: 1 TABLETS, 1 /DAY
     Route: 048
  6. AMLODIPINE [Concomitant]
     Active Substance: AMLODIPINE BESYLATE
     Indication: Hypertension
     Dosage: 10 MILLIGRAM, 1 /DAY
     Route: 048
  7. PROPANOLOL [PROPRANOLOL HYDROCHLORIDE] [Concomitant]
     Indication: Hypertension
     Dosage: 20 MILLIGRAM, 1 /DAY
     Route: 048

REACTIONS (1)
  - Alopecia [Recovered/Resolved]

NARRATIVE: CASE EVENT DATE: 20200715
